FAERS Safety Report 17137936 (Version 1)
Quarter: 2019Q4

REPORT INFORMATION
  Report Type: Spontaneous
  Country: CN (occurrence: CN)
  Receive Date: 20191211
  Receipt Date: 20191211
  Transmission Date: 20200122
  Serious: Yes (Hospitalization)
  Sender: FDA-Public Use
  Company Number: CN-ROCHE-2489598

PATIENT
  Age: 64 Year
  Sex: Male
  Weight: 62 kg

DRUGS (2)
  1. OXALIPLATIN. [Concomitant]
     Active Substance: OXALIPLATIN
  2. CAPECITABINE. [Suspect]
     Active Substance: CAPECITABINE
     Indication: PROSTATE CANCER METASTATIC
     Route: 048
     Dates: start: 20191101

REACTIONS (5)
  - Off label use [Unknown]
  - Intentional product use issue [Unknown]
  - Pigmentation disorder [Recovering/Resolving]
  - Skin disorder [Recovering/Resolving]
  - Skin fissures [Recovering/Resolving]

NARRATIVE: CASE EVENT DATE: 20191113
